FAERS Safety Report 9757193 (Version 1)
Quarter: 2013Q4

REPORT INFORMATION
  Report Type: Spontaneous
  Country: US (occurrence: US)
  Receive Date: 20131213
  Receipt Date: 20131213
  Transmission Date: 20140711
  Serious: Yes (Hospitalization)
  Sender: FDA-Public Use
  Company Number: US-ASTRAZENECA-2013SE89148

PATIENT
  Age: 104 Day
  Sex: Male

DRUGS (2)
  1. SYNAGIS [Suspect]
     Route: 030
     Dates: start: 20131017
  2. SYNAGIS [Suspect]
     Route: 030
     Dates: start: 20131115

REACTIONS (1)
  - Hernia [Recovering/Resolving]
